FAERS Safety Report 18962317 (Version 1)
Quarter: 2021Q1

REPORT INFORMATION
  Report Type: Spontaneous
  Country: DE (occurrence: DE)
  Receive Date: 20210302
  Receipt Date: 20210302
  Transmission Date: 20210420
  Serious: Yes (Death, Life-Threatening, Hospitalization, Other)
  Sender: FDA-Public Use
  Company Number: DE-BRISTOL-MYERS SQUIBB COMPANY-BMS-2021-019800

PATIENT
  Age: 84 Year
  Sex: Female
  Weight: 47 kg

DRUGS (5)
  1. TORASEMID [Concomitant]
     Active Substance: TORSEMIDE
     Indication: HYPERTENSION
     Dosage: 5 MILLIGRAM
     Route: 065
  2. APIXABAN [Suspect]
     Active Substance: APIXABAN
     Indication: CEREBROVASCULAR ACCIDENT PROPHYLAXIS
     Dosage: 10 MILLIGRAM TABLET
     Route: 065
  3. FOSTER [Concomitant]
     Active Substance: BECLOMETHASONE\FORMOTEROL
     Indication: ASTHMA
     Dosage: 100 ?G/ 60 ?G
     Route: 065
  4. ACETYLDIGOXIN [Concomitant]
     Active Substance: .ALPHA.-ACETYLDIGOXIN
     Indication: ATRIAL FIBRILLATION
     Dosage: 0.2 MILLIGRAM
     Route: 065
  5. VERAPAMIL [Concomitant]
     Active Substance: VERAPAMIL HYDROCHLORIDE
     Indication: HYPERTENSION
     Dosage: 80 MILLIGRAM
     Route: 065

REACTIONS (2)
  - Cerebral haemorrhage [Fatal]
  - Brain herniation [Fatal]

NARRATIVE: CASE EVENT DATE: 20201217
